FAERS Safety Report 16792504 (Version 2)
Quarter: 2019Q3

REPORT INFORMATION
  Report Type: Report from Study
  Country: CA (occurrence: CA)
  Receive Date: 20190910
  Receipt Date: 20190917
  Transmission Date: 20191005
  Serious: Yes (Death, Hospitalization)
  Sender: FDA-Public Use
  Company Number: CA-ACTELION-A-NJ2019-195146

PATIENT
  Age: 75 Year
  Sex: Female

DRUGS (15)
  1. SYMBICORT [Concomitant]
     Active Substance: BUDESONIDE\FORMOTEROL FUMARATE DIHYDRATE
  2. NITROGLYCERIN. [Concomitant]
     Active Substance: NITROGLYCERIN
  3. ELIQUIS [Concomitant]
     Active Substance: APIXABAN
  4. POTASSIUM PLUS [Concomitant]
  5. OLMETEC [Concomitant]
     Active Substance: OLMESARTAN MEDOXOMIL
  6. FOLIC ACID. [Concomitant]
     Active Substance: FOLIC ACID
  7. RISEDRONATE [Concomitant]
     Active Substance: RISEDRONATE SODIUM
  8. UPTRAVI [Suspect]
     Active Substance: SELEXIPAG
     Indication: PULMONARY ARTERIAL HYPERTENSION
     Dosage: 200 MCG, BID
     Route: 048
     Dates: start: 20190610
  9. VENTOLIN [Concomitant]
     Active Substance: ALBUTEROL SULFATE
  10. FUROSEMIDE. [Concomitant]
     Active Substance: FUROSEMIDE
  11. OPSUMIT [Suspect]
     Active Substance: MACITENTAN
     Indication: PULMONARY ARTERIAL HYPERTENSION
     Dosage: 10 MG
     Route: 048
     Dates: start: 20160429
  12. SPIRIVA [Concomitant]
     Active Substance: TIOTROPIUM BROMIDE MONOHYDRATE
  13. METOPROLOL. [Concomitant]
     Active Substance: METOPROLOL
  14. ROSUVASTATIN. [Concomitant]
     Active Substance: ROSUVASTATIN
  15. PANTOPRAZOLE [Concomitant]
     Active Substance: PANTOPRAZOLE

REACTIONS (2)
  - Death [Fatal]
  - Intestinal obstruction [Not Recovered/Not Resolved]

NARRATIVE: CASE EVENT DATE: 20190829
